FAERS Safety Report 25680172 (Version 1)
Quarter: 2025Q3

REPORT INFORMATION
  Report Type: Spontaneous
  Country: US (occurrence: US)
  Receive Date: 20250814
  Receipt Date: 20250814
  Transmission Date: 20251020
  Serious: No
  Sender: Kenvue
  Company Number: US-KENVUE-20250709190

PATIENT
  Age: 68 Year
  Sex: Male

DRUGS (1)
  1. PEPCID COMPLETE [Suspect]
     Active Substance: CALCIUM CARBONATE\FAMOTIDINE\MAGNESIUM HYDROXIDE
     Indication: Gastrooesophageal reflux disease
     Dosage: 1 DOSAGE FORM, ONCE IN A WEEK
     Route: 048
     Dates: start: 202507, end: 202507

REACTIONS (5)
  - Illness [Recovering/Resolving]
  - Poor quality product administered [Unknown]
  - Product taste abnormal [Unknown]
  - Product physical issue [Unknown]
  - Product packaging issue [Unknown]

NARRATIVE: CASE EVENT DATE: 20250701
